FAERS Safety Report 6642315-2 (Version None)
Quarter: 2010Q1

REPORT INFORMATION
  Report Type: 
  Country: None (occurrence: None)
  Receive Date: 20100319
  Receipt Date: 20100315
  Transmission Date: 20100710
  Serious: Yes (Other)
  Sender: FDA-Public Use
  Company Number: US-ROCHE-652880

PATIENT
  Sex: Male

DRUGS (12)
  1. PEG-INTERFERON ALFA 2A (RO 25-8310) [Suspect]
     Dosage: FORM: INJECTION
     Route: 058
     Dates: start: 20090330
  2. RIBAVIRIN [Suspect]
     Route: 048
     Dates: start: 20090330
  3. ELTROMBOPAG [Suspect]
     Indication: THROMBOCYTOPENIA
     Route: 048
     Dates: start: 20090309, end: 20090323
  4. ELTROMBOPAG [Suspect]
     Route: 048
     Dates: start: 20090324, end: 20090329
  5. BLINDED ELTROMBOPAG [Suspect]
     Indication: THROMBOCYTOPENIA
     Dosage: DOSE BLINDED.
     Route: 048
     Dates: start: 20090330, end: 20090406
  6. BLINDED ELTROMBOPAG [Suspect]
     Dosage: DOSE BLINDED, DOSAGE INCREASED.
     Route: 048
     Dates: start: 20090407
  7. AZITHROMYCIN [Concomitant]
     Dates: start: 20090818
  8. DIAZEPAM [Concomitant]
     Dates: start: 20090818
  9. FOLIC ACID [Concomitant]
  10. MULTI-VITAMIN [Concomitant]
  11. ATIVAN [Concomitant]
  12. THIAMINE [Concomitant]

REACTIONS (1)
  - NON-CARDIAC CHEST PAIN [None]
